FAERS Safety Report 17218859 (Version 2)
Quarter: 2020Q1

REPORT INFORMATION
  Report Type: Spontaneous
  Country: US (occurrence: US)
  Receive Date: 20191231
  Receipt Date: 20200124
  Transmission Date: 20200409
  Serious: Yes (Other)
  Sender: FDA-Public Use
  Company Number: US-PFIZER INC-2019409591

PATIENT
  Age: 62 Year
  Sex: Male

DRUGS (1)
  1. XELJANZ XR [Suspect]
     Active Substance: TOFACITINIB CITRATE
     Dosage: UNK (SPLITTING THE 11 MG TAB IN HALF)

REACTIONS (6)
  - Therapeutic response shortened [Unknown]
  - Gait disturbance [Unknown]
  - Joint swelling [Unknown]
  - Wrong technique in product usage process [Unknown]
  - Neuropathy peripheral [Unknown]
  - Arthralgia [Unknown]
